FAERS Safety Report 22534430 (Version 1)
Quarter: 2023Q2

REPORT INFORMATION
  Report Type: Spontaneous
  Country: US (occurrence: US)
  Receive Date: 20230608
  Receipt Date: 20230608
  Transmission Date: 20230722
  Serious: Yes (Other)
  Sender: FDA-Public Use
  Company Number: US-BAXTER-2023BAX023176

PATIENT
  Age: 32 Year
  Sex: Male
  Weight: 88 kg

DRUGS (4)
  1. DEXMEDETOMIDINE [Suspect]
     Active Substance: DEXMEDETOMIDINE
     Indication: Sedation
     Dosage: 2 MCG/KG/HR, INFUSION
     Route: 065
  2. DEXMEDETOMIDINE [Suspect]
     Active Substance: DEXMEDETOMIDINE
     Dosage: UP TITRATED TO 8 MCG/KG/HR TO REACH A DESIRED LEVEL OF SEDATION, INFUSION
     Route: 065
  3. FENTANYL [Concomitant]
     Active Substance: FENTANYL
     Indication: Sedation
     Dosage: CONTINUOUS INFUSION
     Route: 041
  4. VASOPRESSIN [Concomitant]
     Active Substance: VASOPRESSIN
     Indication: Vasopressive therapy
     Dosage: .02 UNITS/MIN
     Route: 065

REACTIONS (3)
  - Diabetes insipidus [Unknown]
  - Polyuria [Recovering/Resolving]
  - Electrolyte imbalance [Recovered/Resolved]
